FAERS Safety Report 20213649 (Version 1)
Quarter: 2021Q4

REPORT INFORMATION
  Report Type: Spontaneous
  Country: US (occurrence: US)
  Receive Date: 20211221
  Receipt Date: 20211221
  Transmission Date: 20220303
  Serious: No
  Sender: FDA-Public Use
  Company Number: US-JNJFOC-20211230876

PATIENT
  Sex: Female

DRUGS (2)
  1. MICRONOR [Suspect]
     Active Substance: NORETHINDRONE
     Indication: Product used for unknown indication
     Route: 065
  2. PREMARIN [Suspect]
     Active Substance: ESTROGENS, CONJUGATED
     Indication: Product used for unknown indication
     Dosage: WANTED TO CONTINUE WITH 1.25 OR MAYBE POSSIBLY DROP LATER TO A .9

REACTIONS (1)
  - Dizziness [Unknown]
